FAERS Safety Report 16435242 (Version 1)
Quarter: 2019Q2

REPORT INFORMATION
  Report Type: Spontaneous
  Country: FR (occurrence: FR)
  Receive Date: 20190614
  Receipt Date: 20190614
  Transmission Date: 20190711
  Serious: Yes (Other)
  Sender: FDA-Public Use
  Company Number: FR-PFM-2019-06659

PATIENT

DRUGS (5)
  1. PROPRANOLOL [Suspect]
     Active Substance: PROPRANOLOL HYDROCHLORIDE
     Indication: HYPERTENSION
     Dosage: 120 MG/DAY
     Route: 048
     Dates: start: 20190408, end: 20190408
  2. MIDAZOLAM [Suspect]
     Active Substance: MIDAZOLAM HYDROCHLORIDE
     Indication: SEDATIVE THERAPY
     Dosage: 5 MG/DAY
     Route: 048
     Dates: start: 20190408, end: 20190408
  3. ATORVASTATINE [Concomitant]
     Active Substance: ATORVASTATIN
     Indication: DYSLIPIDAEMIA
     Dosage: 10 MG/DAY
     Route: 048
     Dates: end: 20190408
  4. PROPRANOLOL [Suspect]
     Active Substance: PROPRANOLOL HYDROCHLORIDE
     Indication: OFF LABEL USE
  5. LYRICA [Concomitant]
     Active Substance: PREGABALIN
     Indication: PRODUCT USED FOR UNKNOWN INDICATION
     Dosage: 300 MG/DAY

REACTIONS (4)
  - Loss of consciousness [Recovered/Resolved]
  - Product use issue [Unknown]
  - Product use in unapproved indication [Unknown]
  - Off label use [Unknown]

NARRATIVE: CASE EVENT DATE: 20190408
